FAERS Safety Report 21773963 (Version 1)
Quarter: 2022Q4

REPORT INFORMATION
  Report Type: Spontaneous
  Country: CN (occurrence: CN)
  Receive Date: 20221223
  Receipt Date: 20221223
  Transmission Date: 20230112
  Serious: Yes (Other)
  Sender: FDA-Public Use
  Company Number: CN-009507513-2212CHN008213

PATIENT
  Age: 52 Year
  Sex: Male

DRUGS (2)
  1. INVANZ [Suspect]
     Active Substance: ERTAPENEM SODIUM
     Indication: Pneumonia
     Dosage: 1 G, QD, IV DRIP
     Route: 041
     Dates: start: 20221203, end: 20221203
  2. SODIUM CHLORIDE [Concomitant]
     Active Substance: SODIUM CHLORIDE
     Indication: Medication dilution
     Dosage: 100 ML, QD, IV DRIP
     Route: 041
     Dates: start: 20221203, end: 20221203

REACTIONS (5)
  - Burning sensation [Recovering/Resolving]
  - Skin warm [Recovering/Resolving]
  - Herpes virus infection [Recovering/Resolving]
  - Rash pruritic [Recovering/Resolving]
  - Rash papular [Recovering/Resolving]

NARRATIVE: CASE EVENT DATE: 20221203
